FAERS Safety Report 17117084 (Version 1)
Quarter: 2019Q4

REPORT INFORMATION
  Report Type: Spontaneous
  Country: US (occurrence: US)
  Receive Date: 20191205
  Receipt Date: 20191205
  Transmission Date: 20200122
  Serious: Yes (Other)
  Sender: FDA-Public Use
  Company Number: US-ASTRAZENECA-2019SF70482

PATIENT
  Age: 29 Year
  Sex: Male

DRUGS (2)
  1. ARISTADA [Suspect]
     Active Substance: ARIPIPRAZOLE LAUROXIL
     Route: 030
  2. SEROQUEL [Suspect]
     Active Substance: QUETIAPINE FUMARATE
     Route: 048

REACTIONS (8)
  - Localised infection [Unknown]
  - Hypoaesthesia [Recovered/Resolved]
  - Somnolence [Unknown]
  - Peripheral swelling [Unknown]
  - Tongue disorder [Not Recovered/Not Resolved]
  - Wound [Unknown]
  - Pain [Unknown]
  - Pain in extremity [Unknown]
